FAERS Safety Report 10625838 (Version 2)
Quarter: 2014Q4

REPORT INFORMATION
  Report Type: Spontaneous
  Country: BE (occurrence: BE)
  Receive Date: 20141204
  Receipt Date: 20141231
  Transmission Date: 20150529
  Serious: Yes (Death)
  Sender: FDA-Public Use
  Company Number: PHHY2014BE157265

PATIENT
  Age: 39 Year
  Sex: Male

DRUGS (1)
  1. FLUORESCEINE 0,5% FAURE [Suspect]
     Active Substance: FLUORESCEIN SODIUM
     Indication: ANGIOGRAM RETINA
     Dosage: 1 DF (500 MG), UNK
     Route: 042
     Dates: start: 20141006

REACTIONS (1)
  - Anaphylactic shock [Fatal]

NARRATIVE: CASE EVENT DATE: 20141006
